FAERS Safety Report 19416832 (Version 12)
Quarter: 2022Q2

REPORT INFORMATION
  Report Type: Spontaneous
  Country: SE (occurrence: SE)
  Receive Date: 20210614
  Receipt Date: 20220602
  Transmission Date: 20220721
  Serious: Yes (Congenital Anomaly, Other)
  Sender: FDA-Public Use
  Company Number: NVSC2021SE128548

PATIENT
  Sex: Male

DRUGS (8)
  1. LAMOTRIGINE [Suspect]
     Active Substance: LAMOTRIGINE
     Indication: Foetal exposure during pregnancy
     Dosage: UNK (DURING 1ST TRIMESTER OF PREGNANCY)
     Route: 064
  2. TOPIRAMATE [Suspect]
     Active Substance: TOPIRAMATE
     Indication: Foetal exposure during pregnancy
     Dosage: UNK (DURING FIRST AND THIRD TRIMESTER OF PREGNANCY)
     Route: 064
  3. CLOBAZAM [Suspect]
     Active Substance: CLOBAZAM
     Indication: Foetal exposure during pregnancy
     Dosage: 20 MG, QD (MATERNAL DOSE: 20 MG, QD, DURING FIRST AND THIRD TRIMESTER OF PREGNANCY)
     Route: 064
  4. CLOBAZAM [Suspect]
     Active Substance: CLOBAZAM
     Dosage: 20 MG, QD (DURING FIRST AND THIRD TRIMESTER OF PREGNANCY)
     Route: 064
  5. VALPROIC ACID [Suspect]
     Active Substance: VALPROIC ACID
     Indication: Product used for unknown indication
     Dosage: UNK (DURING FIRST AND THIRD TRIMESTER OF PREGNANCY)
     Route: 064
  6. VALPROIC ACID [Suspect]
     Active Substance: VALPROIC ACID
     Dosage: UNK, MATERNAL DOSE: 2000 MG, QD
     Route: 064
  7. VALPROIC ACID [Suspect]
     Active Substance: VALPROIC ACID
     Dosage: 2000 MG, QD, DURING 1ST TRIMESTER OF PREGNANCY
     Route: 064
  8. TOPIRAMATE [Suspect]
     Active Substance: TOPIRAMATE
     Indication: Foetal exposure during pregnancy
     Dosage: DURING FIRST AND THIRD TRIMESTER OF PREGNANCY
     Route: 064

REACTIONS (2)
  - Hypospadias [Unknown]
  - Foetal exposure during pregnancy [Unknown]
